FAERS Safety Report 10986160 (Version 2)
Quarter: 2015Q2

REPORT INFORMATION
  Report Type: Spontaneous
  Country: US (occurrence: US)
  Receive Date: 20150404
  Receipt Date: 20150525
  Transmission Date: 20150821
  Serious: No
  Sender: FDA-Public Use
  Company Number: US-JNJFOC-20140206512

PATIENT
  Age: 28 Year
  Sex: Female
  Weight: 54.43 kg

DRUGS (2)
  1. IMODIUM A-D [Suspect]
     Active Substance: LOPERAMIDE HYDROCHLORIDE
     Indication: CROHN^S DISEASE
     Dosage: 1 AT A TIME AND 4 A DAY AT MAXIMUM
     Route: 048
  2. IMODIUM A-D [Suspect]
     Active Substance: LOPERAMIDE HYDROCHLORIDE
     Indication: IRRITABLE BOWEL SYNDROME
     Dosage: 1 AT A TIME AND 4 A DAY AT MAXIMUM
     Route: 048

REACTIONS (3)
  - Drug effect decreased [Unknown]
  - Product use issue [Unknown]
  - Dysphagia [Recovered/Resolved]
